FAERS Safety Report 9306759 (Version 2)
Quarter: 2014Q2

REPORT INFORMATION
  Report Type: Report from Study
  Country: US (occurrence: US)
  Receive Date: 20130523
  Receipt Date: 20140507
  Transmission Date: 20141212
  Serious: No
  Sender: FDA-Public Use
  Company Number: US-ALEXION-A201301025

PATIENT
  Sex: 0

DRUGS (3)
  1. SOLIRIS [Suspect]
     Indication: PAROXYSMAL NOCTURNAL HAEMOGLOBINURIA
     Dosage: UNK
     Route: 042
  2. SOLIRIS [Suspect]
     Indication: OFF LABEL USE
     Dosage: 900 MG, Q2W
     Route: 042
     Dates: start: 20130407
  3. NORVASC [Concomitant]
     Indication: HYPERTENSION
     Dosage: UNK, BID
     Route: 065
     Dates: start: 20130201

REACTIONS (5)
  - Dizziness [Unknown]
  - Vomiting [Unknown]
  - Urticaria [Unknown]
  - Off label use [Unknown]
  - Headache [Recovered/Resolved]
